FAERS Safety Report 5197506-7 (Version None)
Quarter: 2006Q4

REPORT INFORMATION
  Report Type: 
  Country: None (occurrence: None)
  Receive Date: 20060926
  Receipt Date: 20050728
  Transmission Date: 20070319
  Serious: Yes (Other)
  Sender: FDA-Public Use
  Company Number: 05-000554

PATIENT
  Age: 45 Year
  Sex: Female

DRUGS (2)
  1. DORYX [Suspect]
     Indication: CYST
     Dosage: 100 MG, QD AT HS, ORAL
     Route: 048
     Dates: start: 20050627, end: 20050712
  2. SYNTHROID [Concomitant]

REACTIONS (3)
  - CHEST PAIN [None]
  - EROSIVE OESOPHAGITIS [None]
  - PHARYNGOLARYNGEAL PAIN [None]
